FAERS Safety Report 23868377 (Version 2)
Quarter: 2024Q2

REPORT INFORMATION
  Report Type: Spontaneous
  Country: US (occurrence: US)
  Receive Date: 20240517
  Receipt Date: 20240528
  Transmission Date: 20240716
  Serious: Yes (Hospitalization, Other)
  Sender: FDA-Public Use
  Company Number: US-OTSUKA-2024_013879

PATIENT
  Sex: Male
  Weight: 25.4 kg

DRUGS (3)
  1. BREXPIPRAZOLE [Suspect]
     Active Substance: BREXPIPRAZOLE
     Indication: Product used for unknown indication
     Dosage: FIVE TO EIGHT 2 MG TABLETS
     Route: 065
  2. CETIRIZINE [Suspect]
     Active Substance: CETIRIZINE HYDROCHLORIDE
     Indication: Product used for unknown indication
     Dosage: 5 MG
     Route: 065
  3. GUANFACINE HYDROCHLORIDE [Suspect]
     Active Substance: GUANFACINE HYDROCHLORIDE
     Indication: Product used for unknown indication
     Dosage: 2 MG, QD
     Route: 065

REACTIONS (15)
  - Electrocardiogram QT prolonged [Unknown]
  - Nystagmus [Unknown]
  - Mental status changes [Unknown]
  - Ataxia [Unknown]
  - Speech disorder [Unknown]
  - Tongue discomfort [Unknown]
  - Tachycardia [Unknown]
  - Rash erythematous [Unknown]
  - Flushing [Unknown]
  - Dysphagia [Unknown]
  - Tremor [Unknown]
  - Crying [Unknown]
  - Drooling [Unknown]
  - Balance disorder [Unknown]
  - Accidental overdose [Unknown]
